FAERS Safety Report 6699561-1 (Version None)
Quarter: 2010Q2

REPORT INFORMATION
  Report Type: 
  Country: None (occurrence: None)
  Receive Date: 20100427
  Receipt Date: 20100427
  Transmission Date: 20101027
  Serious: Yes (Hospitalization, Disabling, Other)
  Sender: FDA-Public Use
  Company Number: None

PATIENT
  Age: 42 Year
  Sex: Female
  Weight: 109.7705 kg

DRUGS (1)
  1. MIRENA [Suspect]

REACTIONS (16)
  - ABDOMINAL DISTENSION [None]
  - BACK PAIN [None]
  - BEDRIDDEN [None]
  - COMPLICATION OF DEVICE INSERTION [None]
  - CRYING [None]
  - CYST [None]
  - DRUG EFFECT DECREASED [None]
  - DRUG INEFFECTIVE [None]
  - FATIGUE [None]
  - FEAR [None]
  - IMPLANT SITE EFFUSION [None]
  - METRORRHAGIA [None]
  - MOOD SWINGS [None]
  - OEDEMA PERIPHERAL [None]
  - PAIN [None]
  - WEIGHT INCREASED [None]
